FAERS Safety Report 6532945-0 (Version None)
Quarter: 2010Q1

REPORT INFORMATION
  Report Type: 
  Country: None (occurrence: None)
  Receive Date: 20100111
  Receipt Date: 20091209
  Transmission Date: 20100710
  Serious: Yes (Death)
  Sender: FDA-Public Use
  Company Number: US-SANOFI-AVENTIS-2009SA003565

PATIENT
  Age: 41 Year
  Sex: Male

DRUGS (5)
  1. OPTICLICK [Suspect]
  2. LANTUS [Suspect]
     Route: 058
     Dates: end: 20090612
  3. APIDRA [Suspect]
     Route: 058
     Dates: end: 20090612
  4. ALL OTHER THERAPEUTIC PRODUCTS [Concomitant]
  5. GLUCOPHAGE [Concomitant]

REACTIONS (3)
  - DEATH [None]
  - HYPOGLYCAEMIA [None]
  - WRONG DRUG ADMINISTERED [None]
